FAERS Safety Report 9518328 (Version 1)
Quarter: 2013Q1

REPORT INFORMATION
  Report Type: Spontaneous
  Country: US (occurrence: None)
  Receive Date: 20130305
  Receipt Date: 20130305
  Transmission Date: 20140127
  Serious: Yes (Other)
  Sender: FDA-Public Use
  Company Number: 163-21880-12081024

PATIENT
  Age: 81 Year
  Sex: Male

DRUGS (5)
  1. REVLIMID [Suspect]
     Indication: PLASMA CELL MYELOMA
     Dosage: 25 MG, 21 IN 28 D, PO?
     Route: 048
     Dates: start: 20120801, end: 20120807
  2. LOSARTAN (LOSARTAN) (UNKNOWN) [Concomitant]
  3. TRILIPIX (CHOLINE FENOFIBRATE) (UNKNOWN) [Concomitant]
  4. AMLODIPNE (AMLODIPINE) (UNKNOWN) [Concomitant]
  5. MV (MV) (UNKNOWN) [Concomitant]

REACTIONS (7)
  - Angioedema [None]
  - Pyrexia [None]
  - Swelling face [None]
  - Rash [None]
  - Oropharyngeal pain [None]
  - Throat irritation [None]
  - Pruritus [None]
